FAERS Safety Report 18687478 (Version 1)
Quarter: 2020Q4

REPORT INFORMATION
  Report Type: Spontaneous
  Country: US (occurrence: US)
  Receive Date: 20201231
  Receipt Date: 20201231
  Transmission Date: 20210114
  Serious: Yes (Hospitalization, Other)
  Sender: FDA-Public Use
  Company Number: US-009507513-2012USA012042

PATIENT

DRUGS (34)
  1. ACTONEL [Suspect]
     Active Substance: RISEDRONATE SODIUM
     Indication: OSTEOPOROSIS
     Dosage: 35 MILLIGRAM, QW (35 MG WEEKLY)
     Route: 048
     Dates: start: 20020930, end: 200512
  2. ATROVENT [Concomitant]
     Active Substance: IPRATROPIUM BROMIDE
     Dosage: UNK
  3. ALLEGRA [Concomitant]
     Active Substance: FEXOFENADINE HYDROCHLORIDE
     Dosage: UNK
  4. TYLENOL WITH CODEINE [Concomitant]
     Active Substance: ACETAMINOPHEN\CODEINE PHOSPHATE
     Dosage: UNK
  5. CALCITONIN [Concomitant]
     Active Substance: CALCITONIN
     Dosage: UNK UNK, UNKNOWN
     Dates: start: 20060814
  6. FOSAMAX [Suspect]
     Active Substance: ALENDRONATE SODIUM
     Indication: OSTEOPOROSIS
     Dosage: 10 MILLIGRAM, QD (10 MG DAILY)
     Route: 048
     Dates: start: 19960304, end: 200009
  7. ACTONEL [Suspect]
     Active Substance: RISEDRONATE SODIUM
     Indication: OSTEOPOROSIS
     Dosage: 20 MILLIGRAM, QD (10 MG TWICE DAILY)
     Route: 048
  8. ADVAIR HFA [Concomitant]
     Active Substance: FLUTICASONE PROPIONATE\SALMETEROL XINAFOATE
     Dosage: UNK
  9. ZANTAC [Concomitant]
     Active Substance: RANITIDINE HYDROCHLORIDE
     Dosage: UNK
  10. MIACALCIN [Suspect]
     Active Substance: CALCITONIN SALMON
     Dosage: UNK
  11. AVELOX [Concomitant]
     Active Substance: MOXIFLOXACIN HYDROCHLORIDE
     Dosage: UNK
  12. CALCIUM (UNSPECIFIED) [Concomitant]
     Active Substance: CALCIUM
     Dosage: UNK
  13. FOSAMAX [Suspect]
     Active Substance: ALENDRONATE SODIUM
     Dosage: 70 MILLIGRAM, QW (70 MG WEEKLY)
     Route: 048
     Dates: start: 20010219, end: 20020423
  14. PREMPHASE [Concomitant]
     Active Substance: ESTROGENS, CONJUGATED\MEDROXYPROGESTERONE ACETATE
     Dosage: UNK
  15. NIFEDIPINE. [Concomitant]
     Active Substance: NIFEDIPINE
     Dosage: UNK
  16. POTASSIUM CHLORIDE. [Concomitant]
     Active Substance: POTASSIUM CHLORIDE
     Dosage: UNK
  17. BUSPIRONE HYDROCHLORIDE. [Concomitant]
     Active Substance: BUSPIRONE HYDROCHLORIDE
     Dosage: UNK
  18. INDAPAMIDE. [Concomitant]
     Active Substance: INDAPAMIDE
     Dosage: UNK
  19. [THERAPY UNSPECIFIED] [Concomitant]
     Active Substance: UNSPECIFIED INGREDIENT
     Dosage: UNK
  20. LEVAQUIN [Concomitant]
     Active Substance: LEVOFLOXACIN
     Dosage: UNK
  21. ACYCLOVIR. [Concomitant]
     Active Substance: ACYCLOVIR
     Dosage: UNK
  22. SINGULAIR [Concomitant]
     Active Substance: MONTELUKAST SODIUM
     Dosage: UNK
  23. CELEBREX [Concomitant]
     Active Substance: CELECOXIB
     Dosage: UNK
  24. PREDNISONE. [Concomitant]
     Active Substance: PREDNISONE
     Dosage: UNK
  25. FLONASE [Concomitant]
     Active Substance: FLUTICASONE PROPIONATE
     Dosage: UNK
  26. METHOCARBAMOL. [Concomitant]
     Active Substance: METHOCARBAMOL
     Dosage: UNK
  27. QUININE SULFATE. [Concomitant]
     Active Substance: QUININE SULFATE
     Dosage: UNK
  28. NITROGLYCERIN. [Concomitant]
     Active Substance: NITROGLYCERIN
     Dosage: UNK
  29. MYCELEX [Concomitant]
     Active Substance: CLOTRIMAZOLE
     Dosage: UNK
  30. ACTONEL [Suspect]
     Active Substance: RISEDRONATE SODIUM
     Indication: OSTEOPOROSIS
     Dosage: 5 MILLIGRAM, QD (5 MG DAILY)
     Route: 048
     Dates: start: 200009, end: 20010219
  31. PROVENTIL [Concomitant]
     Active Substance: ALBUTEROL
     Dosage: UNK
  32. THEOPHYLLINE [Concomitant]
     Active Substance: THEOPHYLLINE ANHYDROUS
     Dosage: UNK
  33. LOPRESSOR HCT [Concomitant]
     Active Substance: HYDROCHLOROTHIAZIDE\METOPROLOL TARTRATE
     Dosage: UNK
  34. NEURONTIN [Concomitant]
     Active Substance: GABAPENTIN
     Dosage: UNK

REACTIONS (33)
  - Pain in extremity [Unknown]
  - Mass [Unknown]
  - Procedural pain [Recovering/Resolving]
  - Arthralgia [Recovering/Resolving]
  - Arthralgia [Recovering/Resolving]
  - Joint dislocation [Recovering/Resolving]
  - Muscular weakness [Not Recovered/Not Resolved]
  - Stress fracture [Recovering/Resolving]
  - Arthralgia [Recovering/Resolving]
  - Periprosthetic fracture [Recovering/Resolving]
  - Osteosclerosis [Unknown]
  - Haematoma [Recovered/Resolved]
  - Device failure [Recovering/Resolving]
  - Bone disorder [Unknown]
  - Femur fracture [Recovering/Resolving]
  - Wound infection [Recovered/Resolved]
  - Groin pain [Recovering/Resolving]
  - Hip deformity [Recovering/Resolving]
  - Femur fracture [Recovering/Resolving]
  - Fracture nonunion [Recovering/Resolving]
  - Fracture nonunion [Recovering/Resolving]
  - Post procedural fistula [Recovered/Resolved]
  - Osteonecrosis [Recovering/Resolving]
  - Abdominal discomfort [Unknown]
  - Fracture nonunion [Recovering/Resolving]
  - Cellulitis [Recovered/Resolved]
  - Bacteraemia [Recovered/Resolved]
  - Incorrect dose administered [Recovered/Resolved]
  - Osteomyelitis chronic [Recovering/Resolving]
  - Device failure [Recovering/Resolving]
  - Fracture nonunion [Recovering/Resolving]
  - Arthralgia [Recovering/Resolving]
  - Vascular device infection [Recovered/Resolved]

NARRATIVE: CASE EVENT DATE: 200102
